FAERS Safety Report 7282237-X (Version None)
Quarter: 2011Q1

REPORT INFORMATION
  Report Type: 
  Country: None (occurrence: None)
  Receive Date: 20110209
  Receipt Date: 20110131
  Transmission Date: 20110831
  Serious: Yes (Life-Threatening, Hospitalization)
  Sender: FDA-Public Use
  Company Number: US-ELI_LILLY_AND_COMPANY-US201102000341

PATIENT
  Age: 44 Year
  Sex: Female
  Weight: 63.356 kg

DRUGS (11)
  1. NEXIUM [Concomitant]
  2. LASIX [Concomitant]
  3. WELLBUTRIN [Concomitant]
     Indication: ANTIDEPRESSANT THERAPY
     Dosage: 100 MG, 2/D
     Route: 048
  4. FLOLAN [Concomitant]
     Indication: COR PULMONALE CHRONIC
     Dosage: 35.4 NG, UNK
     Dates: start: 20080912
  5. KLOR-CON [Concomitant]
  6. LISINOPRIL [Concomitant]
  7. PROZAC [Suspect]
     Indication: ANTIDEPRESSANT THERAPY
     Dosage: 20 MG, 2/D
     Route: 048
  8. PREDNISONE [Concomitant]
  9. CLONAZEPAM [Concomitant]
  10. FLOLAN [Concomitant]
     Dosage: 30.56 NG, UNK
     Route: 042
     Dates: start: 20080912
  11. RYTHMOL /00546302/ [Concomitant]
     Dosage: 150 MG, 3/D
     Route: 048

REACTIONS (3)
  - HEART RATE INCREASED [None]
  - CONFUSIONAL STATE [None]
  - DIZZINESS [None]
